FAERS Safety Report 9415520 (Version 3)
Quarter: 2013Q3

REPORT INFORMATION
  Report Type: Spontaneous
  Country: US (occurrence: US)
  Receive Date: 20130723
  Receipt Date: 20130911
  Transmission Date: 20140515
  Serious: Yes (Other)
  Sender: FDA-Public Use
  Company Number: US-SHIRE-ALL1-2013-04835

PATIENT
  Sex: Female
  Weight: 77.1 kg

DRUGS (8)
  1. VYVANSE [Suspect]
     Indication: ATTENTION DEFICIT/HYPERACTIVITY DISORDER
     Dosage: 60 MG, 1X/DAY:QD
     Route: 048
     Dates: start: 201211
  2. VYVANSE [Suspect]
     Dosage: 70 MG, 1X/DAY:QD
     Route: 048
     Dates: start: 201202, end: 201203
  3. VYVANSE [Suspect]
     Dosage: UNK, UNKNOWN
     Route: 048
     Dates: start: 2009
  4. LEVOTHYROXINE [Concomitant]
     Indication: HYPOTHYROIDISM
     Dosage: 100 ?G, 1X/DAY:QD
     Route: 048
     Dates: start: 2007
  5. WELLBUTRIN [Concomitant]
     Indication: NEUROPATHY PERIPHERAL
     Dosage: 150 MG, 2X/DAY:BID
     Route: 048
     Dates: start: 2009
  6. ZONEGRAN [Concomitant]
     Indication: CONVULSION
     Dosage: 100 MG, 2X/DAY:BID
     Route: 048
     Dates: start: 2010, end: 2013
  7. TOPAMAX [Concomitant]
     Indication: CONVULSION
     Dosage: 100 MG, 2X/DAY:BID
     Route: 048
     Dates: start: 2013, end: 201307
  8. TOPAMAX [Concomitant]
     Dosage: 100 MG, 3X/DAY:TID
     Route: 048
     Dates: start: 201307

REACTIONS (5)
  - Vaginal haemorrhage [Recovered/Resolved]
  - Placenta praevia [Recovered/Resolved]
  - Exposure during pregnancy [Recovered/Resolved]
  - Drug ineffective [Recovered/Resolved]
  - Product quality issue [Unknown]
